FAERS Safety Report 9322204 (Version 1)
Quarter: 2013Q2

REPORT INFORMATION
  Report Type: Spontaneous
  Country: CA (occurrence: CA)
  Receive Date: 20130531
  Receipt Date: 20130531
  Transmission Date: 20140414
  Serious: Yes (Disabling, Other)
  Sender: FDA-Public Use
  Company Number: CA-JNJFOC-20130515171

PATIENT
  Age: 41 Year
  Sex: Female

DRUGS (8)
  1. TYLENOL [Suspect]
     Route: 065
  2. TYLENOL [Suspect]
     Indication: PRODUCT USED FOR UNKNOWN INDICATION
     Route: 065
  3. ADVIL [Suspect]
     Indication: PRODUCT USED FOR UNKNOWN INDICATION
     Route: 065
  4. BETASERON (INTERFERON BETA-IB) [Suspect]
     Indication: PRODUCT USED FOR UNKNOWN INDICATION
     Dosage: POWDER FOR SOLUTION SUBCUTANEOUS
     Route: 058
  5. GLUCONORM NOS [Concomitant]
     Route: 065
  6. METFORMIN [Concomitant]
     Route: 065
  7. TRAMADOL HYDROCHLORIDE [Concomitant]
     Route: 065
  8. VITAMIN D [Concomitant]
     Route: 065

REACTIONS (1)
  - Disease progression [Not Recovered/Not Resolved]
